FAERS Safety Report 4314164-1 (Version None)
Quarter: 2004Q1

REPORT INFORMATION
  Report Type: 
  Country: None (occurrence: None)
  Receive Date: 20040308
  Receipt Date: 20040308
  Transmission Date: 20041129
  Serious: Yes (Other)
  Sender: FDA-Public Use
  Company Number: None

PATIENT
  Sex: Male
  Weight: 104.3273 kg

DRUGS (1)
  1. HYZAAR [Suspect]
     Indication: OESOPHAGEAL ADENOCARCINOMA
     Dosage: 100 MG DAILY ORAL
     Route: 048
     Dates: start: 19990101, end: 20040305

REACTIONS (1)
  - UNEVALUABLE EVENT [None]
